FAERS Safety Report 10451650 (Version 2)
Quarter: 2014Q4

REPORT INFORMATION
  Report Type: Spontaneous
  Country: IT (occurrence: IT)
  Receive Date: 20140914
  Receipt Date: 20141127
  Transmission Date: 20150528
  Serious: Yes (Hospitalization)
  Sender: FDA-Public Use
  Company Number: IT-BRISTOL-MYERS SQUIBB COMPANY-21369707

PATIENT
  Age: 83 Year
  Sex: Female

DRUGS (7)
  1. COUMADIN [Suspect]
     Active Substance: WARFARIN SODIUM
     Indication: ATRIAL FIBRILLATION
     Dosage: 1DF:1 UNIT
     Route: 048
     Dates: start: 20140427, end: 20140519
  2. FUROSEMIDE. [Concomitant]
     Active Substance: FUROSEMIDE
  3. ALDACTONE [Concomitant]
     Active Substance: SPIRONOLACTONE
  4. RAMIPRIL. [Concomitant]
     Active Substance: RAMIPRIL
  5. AMIODARONE HCL [Concomitant]
     Active Substance: AMIODARONE HYDROCHLORIDE
  6. NEXIUM [Concomitant]
     Active Substance: ESOMEPRAZOLE MAGNESIUM
  7. FROBEN [Interacting]
     Active Substance: FLURBIPROFEN
     Dosage: 1DF:1 100 MG TABS
     Route: 048
     Dates: start: 20140510, end: 20140519

REACTIONS (3)
  - Drug interaction [Recovered/Resolved]
  - Gastrointestinal haemorrhage [Recovered/Resolved]
  - Anaemia [Recovered/Resolved]

NARRATIVE: CASE EVENT DATE: 20140519
